FAERS Safety Report 8811828 (Version 1)
Quarter: 2012Q4

REPORT INFORMATION
  Report Type: 
  Country: IT (occurrence: IT)
  Receive Date: 20120927
  Receipt Date: 20120927
  Transmission Date: 20130627
  Serious: Yes (Other)
  Sender: FDA-Public Use
  Company Number: IT-GLAXOSMITHKLINE-B0717328A

PATIENT
  Age: 62 Year
  Sex: Female

DRUGS (2)
  1. TYVERB [Suspect]
     Indication: BREAST CANCER METASTATIC
     Route: 065
     Dates: start: 20110124, end: 20110201
  2. XELODA [Concomitant]
     Indication: PRODUCT USED FOR UNKNOWN INDICATION
     Dosage: 2G per day
     Route: 048
     Dates: start: 20110112, end: 20110126

REACTIONS (3)
  - Skin toxicity [Recovering/Resolving]
  - Granuloma [Recovering/Resolving]
  - Skin ulcer [Recovering/Resolving]
